FAERS Safety Report 11213940 (Version 1)
Quarter: 2015Q2

REPORT INFORMATION
  Report Type: Spontaneous
  Country: AR (occurrence: AR)
  Receive Date: 20150623
  Receipt Date: 20150623
  Transmission Date: 20150821
  Serious: Yes (Life-Threatening)
  Sender: FDA-Public Use
  Company Number: AR-SA-2015SA089013

PATIENT
  Sex: Male

DRUGS (6)
  1. OMEPRAZOLE. [Concomitant]
     Active Substance: OMEPRAZOLE
     Indication: PROPHYLAXIS
     Route: 048
     Dates: start: 20150513
  2. LEMTRADA [Suspect]
     Active Substance: ALEMTUZUMAB
     Indication: MULTIPLE SCLEROSIS
     Route: 042
     Dates: start: 20150513, end: 20150517
  3. SOLU-MEDROL [Concomitant]
     Active Substance: METHYLPREDNISOLONE SODIUM SUCCINATE
     Indication: MULTIPLE SCLEROSIS
     Route: 042
     Dates: start: 20150513, end: 20150517
  4. DELTISON [Concomitant]
     Indication: MULTIPLE SCLEROSIS
     Route: 048
     Dates: start: 20150513
  5. ISONIAZID. [Concomitant]
     Active Substance: ISONIAZID
     Indication: PROPHYLAXIS
     Route: 048
     Dates: start: 20150513
  6. ACICLOVIR [Concomitant]
     Active Substance: ACYCLOVIR
     Indication: PROPHYLAXIS
     Route: 048
     Dates: start: 20150513, end: 20150613

REACTIONS (2)
  - Thrombocytopenia [Not Recovered/Not Resolved]
  - Leukopenia [Not Recovered/Not Resolved]
